FAERS Safety Report 8540636 (Version 3)
Quarter: 2012Q4

REPORT INFORMATION
  Report Type: 
  Country: US (occurrence: US)
  Receive Date: 20120502
  Receipt Date: 20121107
  Transmission Date: 20130627
  Serious: Yes (Death, Other)
  Sender: FDA-Public Use
  Company Number: US-ELI_LILLY_AND_COMPANY-US201204003917

PATIENT
  Sex: Female
  Weight: 93 kg

DRUGS (8)
  1. ADCIRCA [Suspect]
     Indication: PULMONARY ARTERIAL HYPERTENSION
     Dosage: 40 mg, qd
     Dates: start: 201201, end: 20120420
  2. ADCIRCA [Suspect]
     Dosage: 20 mg, qd
     Dates: start: 20120424
  3. WARFARIN [Concomitant]
  4. LISINOPRIL [Concomitant]
  5. GLUCOTROL [Concomitant]
  6. LANTUS [Concomitant]
  7. MAGNESIUM [Concomitant]
  8. LORAZEPAM [Concomitant]

REACTIONS (14)
  - Death [Fatal]
  - Loss of consciousness [Unknown]
  - Laceration [Unknown]
  - Arthritis [Unknown]
  - Fibromyalgia [Unknown]
  - Cold sweat [Unknown]
  - Tremor [Unknown]
  - Rash [Recovered/Resolved]
  - Hyperhidrosis [Unknown]
  - Heart rate increased [Unknown]
  - Flushing [Unknown]
  - Nasal congestion [Unknown]
  - Headache [Unknown]
  - Myalgia [Unknown]
